FAERS Safety Report 8263606-8 (Version None)
Quarter: 2012Q2

REPORT INFORMATION
  Report Type: 
  Country: None (occurrence: None)
  Receive Date: 20120405
  Receipt Date: 20120403
  Transmission Date: 20120825
  Serious: No
  Sender: FDA-Public Use
  Company Number: US-BAYER-2012-033446

PATIENT
  Sex: Female
  Weight: 63 kg

DRUGS (3)
  1. ALEVE (CAPLET) [Suspect]
     Dosage: 1-2 TAB AS NEEDED
     Route: 048
     Dates: start: 20120330
  2. UNCODEABLE ^UNCLASSIFIABLE^ [Concomitant]
  3. ASPIRIN [Concomitant]
     Dosage: OTHER FREQUENCY
     Route: 048

REACTIONS (1)
  - INSOMNIA [None]
